FAERS Safety Report 7715468-2 (Version None)
Quarter: 2011Q3

REPORT INFORMATION
  Report Type: 
  Country: None (occurrence: None)
  Receive Date: 20110829
  Receipt Date: 20110816
  Transmission Date: 20111222
  Serious: Yes (Other)
  Sender: FDA-Public Use
  Company Number: PL-UCBSA-039446

PATIENT
  Age: 30 Year
  Sex: Female

DRUGS (8)
  1. LAMICTAL [Concomitant]
  2. NEURONTIN [Concomitant]
  3. TRILEPTAL [Concomitant]
  4. TRILEPTAL [Concomitant]
  5. TRILEPTAL [Concomitant]
  6. OXCARBAZEPINE [Concomitant]
     Dosage: 150-0-150
  7. KEPPRA [Suspect]
     Dates: start: 20060501
  8. TEGRETOL [Concomitant]

REACTIONS (4)
  - DEPRESSIVE SYMPTOM [None]
  - SELF INJURIOUS BEHAVIOUR [None]
  - PSYCHOMOTOR HYPERACTIVITY [None]
  - ABNORMAL BEHAVIOUR [None]
